FAERS Safety Report 23633719 (Version 1)
Quarter: 2024Q1

REPORT INFORMATION
  Report Type: Spontaneous
  Country: US (occurrence: US)
  Receive Date: 20240314
  Receipt Date: 20240314
  Transmission Date: 20240409
  Serious: Yes (Other)
  Sender: FDA-Public Use
  Company Number: US-BRISTOL-MYERS SQUIBB COMPANY-2024-040804

PATIENT
  Age: 65 Year
  Sex: Female

DRUGS (2)
  1. LENALIDOMIDE [Suspect]
     Active Substance: LENALIDOMIDE
     Indication: Plasma cell myeloma
     Dosage: TAKE 1 CAPSULE BY MOUTH EVERY DAY FOR 21 DAYS OUT OF 28 DAY
     Route: 048
     Dates: end: 202308
  2. VELCADE [Concomitant]
     Active Substance: BORTEZOMIB
     Indication: Product used for unknown indication
     Dosage: SHOT ON BELLY

REACTIONS (6)
  - Nasopharyngitis [Unknown]
  - Neuralgia [Unknown]
  - Polyarthritis [Unknown]
  - Nausea [Unknown]
  - Diarrhoea [Unknown]
  - Throat clearing [Unknown]

NARRATIVE: CASE EVENT DATE: 20240301
